FAERS Safety Report 4649396-6 (Version None)
Quarter: 2005Q2

REPORT INFORMATION
  Report Type: 
  Country: None (occurrence: None)
  Receive Date: 20050427
  Receipt Date: 20050418
  Transmission Date: 20051028
  Serious: Yes (Death, Hospitalization)
  Sender: FDA-Public Use
  Company Number: F01200500611

PATIENT
  Age: 57 Year
  Sex: Female

DRUGS (3)
  1. OXALIPLATIN [Suspect]
     Indication: PANCREATIC CARCINOMA
     Dosage: SEE IMAGE
     Route: 042
  2. FLUOROURACIL [Suspect]
     Dosage: SEE IMAGE
     Route: 042
     Dates: end: 20050414
  3. INSULIN [Concomitant]

REACTIONS (1)
  - HYPOGLYCAEMIA [None]
